FAERS Safety Report 26172792 (Version 1)
Quarter: 2025Q4

REPORT INFORMATION
  Report Type: Spontaneous
  Country: JP (occurrence: JP)
  Receive Date: 20251218
  Receipt Date: 20251218
  Transmission Date: 20260117
  Serious: Yes (Other)
  Sender: ASTELLAS
  Company Number: JP-ASTELLAS-2025-AER-069653

PATIENT
  Age: 69 Year
  Sex: Male

DRUGS (2)
  1. ENFORTUMAB VEDOTIN [Suspect]
     Active Substance: ENFORTUMAB VEDOTIN
     Indication: Transitional cell carcinoma
     Route: 065
     Dates: start: 202503
  2. PEMBROLIZUMAB [Suspect]
     Active Substance: PEMBROLIZUMAB
     Indication: Transitional cell carcinoma
     Route: 065
     Dates: start: 202503

REACTIONS (3)
  - Metastases to pleura [Unknown]
  - Drug-induced liver injury [Unknown]
  - Pancreatitis [Recovering/Resolving]

NARRATIVE: CASE EVENT DATE: 20250101
